FAERS Safety Report 5873707-7 (Version None)
Quarter: 2008Q3

REPORT INFORMATION
  Report Type: 
  Country: None (occurrence: None)
  Receive Date: 20080908
  Receipt Date: 20080904
  Transmission Date: 20090109
  Serious: Yes (Death)
  Sender: FDA-Public Use
  Company Number: D0058619A

PATIENT
  Sex: Male

DRUGS (9)
  1. VIANI [Suspect]
     Route: 065
  2. CIPRAMIL [Suspect]
     Route: 065
  3. DICLOFENAC [Suspect]
     Route: 065
  4. CORDAREX [Suspect]
     Route: 065
  5. DOXYCYCLIN [Suspect]
     Route: 065
  6. RISPERDAL [Suspect]
     Route: 065
  7. TORSEMIDE [Suspect]
     Route: 065
  8. THEOPHYLLINE [Suspect]
     Route: 065
  9. NEUROCIL [Suspect]
     Route: 065

REACTIONS (3)
  - DEATH [None]
  - LEFT VENTRICULAR FAILURE [None]
  - SMALL INTESTINAL PERFORATION [None]
